FAERS Safety Report 15561521 (Version 2)
Quarter: 2019Q1

REPORT INFORMATION
  Report Type: Spontaneous
  Country: RO (occurrence: RO)
  Receive Date: 20181029
  Receipt Date: 20190129
  Transmission Date: 20190417
  Serious: Yes (Other)
  Sender: FDA-Public Use
  Company Number: RO-PFIZER INC-2018438890

PATIENT
  Age: 47 Year
  Sex: Male
  Weight: 103 kg

DRUGS (9)
  1. SUTENT [Suspect]
     Active Substance: SUNITINIB MALATE
     Indication: RENAL CANCER METASTATIC
     Dosage: 50 MG, UNK
     Dates: start: 2016, end: 20180926
  2. TRAMADOL. [Concomitant]
     Active Substance: TRAMADOL
     Dosage: UNK, 1X/DAY IN THE MORNING + AS NEEDED
  3. TERTENSIF [Concomitant]
     Active Substance: INDAPAMIDE
     Dosage: UNK, 1X/DAY, IN THE MORNING
  4. EUTHYROX [Concomitant]
     Active Substance: LEVOTHYROXINE SODIUM
     Dosage: UNK UNK, 1X/DAY, MORNING
  5. NEBILET [Concomitant]
     Active Substance: NEBIVOLOL
     Dosage: UNK, 1X/DAY IN THE MORNING
  6. ALGOCALMIN [Concomitant]
     Active Substance: METAMIZOLE SODIUM
     Dosage: UNK, 2X/DAY, IN THE MORNING AND IN THE EVENING
  7. PRESTARIUM [PERINDOPRIL] [Concomitant]
     Dosage: UNK, 2X/DAY, MORNING AND EVENING
  8. PREDUCTAL [Concomitant]
     Active Substance: TRIMETAZIDINE DIHYDROCHLORIDE
     Dosage: UNK, 1X/DAY, EVENING
  9. OMACOR [Concomitant]
     Active Substance: OMEGA-3-ACID ETHYL ESTERS
     Dosage: UNK UNK, 1X/DAY, MORNING

REACTIONS (2)
  - Neoplasm progression [Unknown]
  - Pulmonary mass [Unknown]

NARRATIVE: CASE EVENT DATE: 20180924
